FAERS Safety Report 25416033 (Version 2)
Quarter: 2025Q2

REPORT INFORMATION
  Report Type: Spontaneous
  Country: PT (occurrence: PT)
  Receive Date: 20250610
  Receipt Date: 20250623
  Transmission Date: 20250717
  Serious: Yes (Death, Other)
  Sender: IPSEN BIOPHARMACEUTICALS, INC.
  Company Number: PT-IPSEN Group, Research and Development-2025-13348

PATIENT
  Age: 64 Year
  Sex: Male

DRUGS (5)
  1. LANREOTIDE ACETATE [Suspect]
     Active Substance: LANREOTIDE ACETATE
     Indication: Insulinoma
     Route: 065
  2. EVEROLIMUS [Suspect]
     Active Substance: EVEROLIMUS
     Indication: Product used for unknown indication
     Route: 065
  3. PREDNISOLONE [Concomitant]
     Active Substance: PREDNISOLONE
  4. DIAZOXIDE [Concomitant]
     Active Substance: DIAZOXIDE
  5. OCTREOTIDE [Concomitant]
     Active Substance: OCTREOTIDE

REACTIONS (5)
  - Death [Fatal]
  - Cardiac failure [Unknown]
  - Pancytopenia [Unknown]
  - Hypoglycaemia [Unknown]
  - Drug ineffective [Unknown]
